FAERS Safety Report 9959376 (Version 1)
Quarter: 2014Q1

REPORT INFORMATION
  Report Type: Report from Study
  Country: US (occurrence: US)
  Receive Date: 20140305
  Receipt Date: 20140305
  Transmission Date: 20141002
  Serious: No
  Sender: FDA-Public Use
  Company Number: US-ABBVIE-13P-163-1105670-00

PATIENT
  Age: 38 Year
  Sex: Male

DRUGS (15)
  1. HUMIRA [Suspect]
     Indication: COLITIS ULCERATIVE
     Dosage: LOADING DOSE
     Dates: start: 20130509, end: 20130509
  2. HUMIRA [Suspect]
     Dosage: LOADING DOSE
     Dates: start: 20130523, end: 20130523
  3. HUMIRA [Suspect]
  4. PROBIOTICS [Concomitant]
     Indication: PRODUCT USED FOR UNKNOWN INDICATION
     Dosage: ONE DAILY
  5. VIT B12 [Concomitant]
     Indication: PRODUCT USED FOR UNKNOWN INDICATION
  6. FOLIC ACID [Concomitant]
     Indication: PRODUCT USED FOR UNKNOWN INDICATION
  7. VIT D [Concomitant]
     Indication: PRODUCT USED FOR UNKNOWN INDICATION
     Dosage: AT BEDTIME
  8. VIT B COMPLEX [Concomitant]
     Indication: PRODUCT USED FOR UNKNOWN INDICATION
     Dosage: 150 EACH, ONCE DAILY
  9. BACLOFEN [Concomitant]
     Indication: BACK PAIN
  10. BACLOFEN [Concomitant]
  11. ZOLPIDEM [Concomitant]
     Indication: SLEEP DISORDER
     Dosage: AT BEDTIME, AS NEEDED
  12. HYDROCODONE [Concomitant]
     Indication: GASTROINTESTINAL PAIN
     Dosage: 7.5/325MG, EVERY 8 HOURS, AS NEEDED
  13. ALPRAZOLAM [Concomitant]
     Indication: PRODUCT USED FOR UNKNOWN INDICATION
     Dosage: 1/2 OF A 1MG TAB, AS NEEDED
  14. HYOSCAMINE [Concomitant]
     Indication: COLITIS ULCERATIVE
     Dosage: AS NEEDED
  15. SULFASALAZINE [Concomitant]
     Indication: COLITIS ULCERATIVE
     Dosage: AS NEEDED

REACTIONS (7)
  - Oropharyngeal pain [Not Recovered/Not Resolved]
  - Increased upper airway secretion [Not Recovered/Not Resolved]
  - Rash [Not Recovered/Not Resolved]
  - Dizziness [Not Recovered/Not Resolved]
  - Sinusitis [Not Recovered/Not Resolved]
  - Skin discolouration [Not Recovered/Not Resolved]
  - Erythema [Not Recovered/Not Resolved]
